FAERS Safety Report 9882970 (Version 1)
Quarter: 2014Q1

REPORT INFORMATION
  Report Type: Spontaneous
  Country: KR (occurrence: None)
  Receive Date: 20140204
  Receipt Date: 20140204
  Transmission Date: 20141002
  Serious: Yes (Hospitalization)
  Sender: FDA-Public Use
  Company Number: FK201400338

PATIENT
  Age: 49 None
  Sex: Male

DRUGS (9)
  1. IRINOTECAN [Suspect]
     Indication: COLON CANCER
     Dosage: 180 MG/M2, CYCLE 1 AND 2, INTRAVENOUS (NOT OTHERWISE SPECIFIED)
  2. IRINOTECAN [Suspect]
     Indication: METASTASES TO PELVIS
     Dosage: 180 MG/M2, CYCLE 1 AND 2, INTRAVENOUS (NOT OTHERWISE SPECIFIED)
  3. METOCLOPRAMIDE [Suspect]
     Indication: COLON CANCER
  4. METOCLOPRAMIDE [Suspect]
     Indication: METASTASES TO PELVIS
  5. FLUOROURACIL (FLUOROURACIL) [Concomitant]
  6. OXALIPLATIN (OXALIPLATIN) [Concomitant]
  7. LEUCOVORIN (CALCIUM FOLINATE) [Concomitant]
  8. PALONOSETRON (PALONOSETRON) [Concomitant]
  9. ATROPINE (ATROPINE) [Concomitant]

REACTIONS (8)
  - Hypoaesthesia oral [None]
  - Dysarthria [None]
  - Tongue paralysis [None]
  - Infusion related reaction [None]
  - Decreased appetite [None]
  - Diarrhoea [None]
  - Off label use [None]
  - Tongue disorder [None]
